FAERS Safety Report 4875326-8 (Version None)
Quarter: 2006Q1

REPORT INFORMATION
  Report Type: 
  Country: None (occurrence: None)
  Receive Date: 20060109
  Receipt Date: 20051005
  Transmission Date: 20060701
  Serious: Yes (Hospitalization)
  Sender: FDA-Public Use
  Company Number: US-MERCK-0510USA05348

PATIENT
  Age: 40 Year
  Sex: Female
  Weight: 55 kg

DRUGS (4)
  1. VIOXX [Suspect]
     Indication: OSTEOARTHRITIS
     Route: 048
     Dates: start: 19990101, end: 20040905
  2. VIOXX [Suspect]
     Indication: TENDONITIS
     Route: 048
     Dates: start: 19990101, end: 20040905
  3. ULTRAM [Concomitant]
     Route: 065
  4. ASPIRIN [Concomitant]
     Route: 065

REACTIONS (4)
  - DEPRESSION [None]
  - LIMB INJURY [None]
  - MYOCARDIAL INFARCTION [None]
  - NECK INJURY [None]
